FAERS Safety Report 13849213 (Version 1)
Quarter: 2017Q3

REPORT INFORMATION
  Report Type: Spontaneous
  Country: US (occurrence: US)
  Receive Date: 20170809
  Receipt Date: 20170809
  Transmission Date: 20171127
  Serious: Yes (Disabling)
  Sender: FDA-Public Use
  Company Number: None

PATIENT
  Age: 45 Year
  Sex: Female
  Weight: 77.4 kg

DRUGS (5)
  1. MULTIVITAMIN [Concomitant]
     Active Substance: VITAMINS
  2. ALEVE [Concomitant]
     Active Substance: NAPROXEN SODIUM
  3. WP THYROID [Concomitant]
     Active Substance: THYROID, PORCINE
  4. MELOXICAM. [Concomitant]
     Active Substance: MELOXICAM
  5. LUPRON DEPOT [Suspect]
     Active Substance: LEUPROLIDE ACETATE
     Indication: ENDOMETRIOSIS
     Dosage: ?          QUANTITY:1 INJECTION(S);OTHER FREQUENCY:ONCE A MONTH;OTHER ROUTE:INJECTIONS IM?
     Route: 030

REACTIONS (9)
  - Osteoporosis [None]
  - Hot flush [None]
  - Weight increased [None]
  - Vulval disorder [None]
  - Depression [None]
  - Alopecia [None]
  - Fatigue [None]
  - Autoimmune thyroiditis [None]
  - Cystitis interstitial [None]

NARRATIVE: CASE EVENT DATE: 20000715
